FAERS Safety Report 21211000 (Version 1)
Quarter: 2022Q3

REPORT INFORMATION
  Report Type: Spontaneous
  Country: US (occurrence: None)
  Receive Date: 20220812
  Receipt Date: 20220812
  Transmission Date: 20221027
  Serious: Yes (Hospitalization)
  Sender: FDA-Public Use
  Company Number: None

PATIENT
  Sex: Female
  Weight: 50.8 kg

DRUGS (4)
  1. METHOTREXATE [Suspect]
     Active Substance: METHOTREXATE
  2. ONCASPAR [Concomitant]
     Active Substance: PEGASPARGASE
  3. RITUXIMAB [Concomitant]
     Active Substance: RITUXIMAB
  4. VINCRISTINE SULFATE [Concomitant]
     Active Substance: VINCRISTINE SULFATE

REACTIONS (5)
  - Sepsis [None]
  - Tachycardia [None]
  - Leukopenia [None]
  - Colitis [None]
  - Haemoglobin decreased [None]

NARRATIVE: CASE EVENT DATE: 20220808
